FAERS Safety Report 17531359 (Version 1)
Quarter: 2020Q1

REPORT INFORMATION
  Report Type: Spontaneous
  Country: VN (occurrence: VN)
  Receive Date: 20200311
  Receipt Date: 20200311
  Transmission Date: 20200409
  Serious: Yes (Other)
  Sender: FDA-Public Use
  Company Number: VN-ASTRAZENECA-2020SE33597

PATIENT
  Age: 55 Year
  Sex: Female

DRUGS (1)
  1. TAGRISSO [Suspect]
     Active Substance: OSIMERTINIB
     Indication: NON-SMALL CELL LUNG CANCER STAGE II
     Route: 048
     Dates: start: 20190918, end: 20200302

REACTIONS (1)
  - Malignant neoplasm progression [Unknown]
